FAERS Safety Report 7960232-2 (Version None)
Quarter: 2011Q4

REPORT INFORMATION
  Report Type: 
  Country: None (occurrence: None)
  Receive Date: 20111206
  Receipt Date: 20111201
  Transmission Date: 20120403
  Serious: Yes (Other)
  Sender: FDA-Public Use
  Company Number: BR-ABBOTT-11P-020-0880216-00

PATIENT
  Sex: Male
  Weight: 55 kg

DRUGS (2)
  1. HUMIRA [Suspect]
     Indication: ANKYLOSING SPONDYLITIS
     Route: 058
     Dates: start: 20101103
  2. HUMIRA [Suspect]
     Route: 058
     Dates: end: 20110801

REACTIONS (5)
  - BONE PAIN [None]
  - BLADDER DISORDER [None]
  - RENAL DISORDER [None]
  - DYSPNOEA [None]
  - MYOCARDIAL INFARCTION [None]
